FAERS Safety Report 6539900-5 (Version None)
Quarter: 2010Q1

REPORT INFORMATION
  Report Type: 
  Country: None (occurrence: None)
  Receive Date: 20100113
  Receipt Date: 20090603
  Transmission Date: 20100710
  Serious: Yes (Disabling)
  Sender: FDA-Public Use
  Company Number: 09-000921

PATIENT
  Sex: Female

DRUGS (1)
  1. FEMCON FE [Suspect]
     Dosage: 0.4MG/35MCG, ORAL
     Route: 048
     Dates: start: 20070123

REACTIONS (1)
  - CEREBROVASCULAR ACCIDENT [None]
